FAERS Safety Report 5689388-1 (Version None)
Quarter: 2008Q1

REPORT INFORMATION
  Report Type: 
  Country: None (occurrence: None)
  Receive Date: 20080331
  Receipt Date: 20080320
  Transmission Date: 20080703
  Serious: Yes (Hospitalization, Other)
  Sender: FDA-Public Use
  Company Number: AU-AMGEN-US267969

PATIENT
  Sex: Female

DRUGS (5)
  1. PANITUMUMAB [Suspect]
     Indication: COLORECTAL CANCER
     Route: 042
     Dates: start: 20071127, end: 20080226
  2. IRINOTECAN HCL [Suspect]
  3. FLUOROURACIL [Suspect]
  4. FOLINIC ACID [Suspect]
  5. XELODA [Suspect]

REACTIONS (2)
  - ABDOMINAL PAIN [None]
  - PAIN [None]
